FAERS Safety Report 5460039-4 (Version None)
Quarter: 2007Q3

REPORT INFORMATION
  Report Type: 
  Country: None (occurrence: None)
  Receive Date: 20070919
  Receipt Date: 20070605
  Transmission Date: 20080115
  Serious: Yes (Hospitalization)
  Sender: FDA-Public Use
  Company Number: US-ASTRAZENECA-2007UW10870

PATIENT
  Age: 64 Year
  Sex: Male
  Weight: 73.6 kg

DRUGS (2)
  1. SEROQUEL [Suspect]
     Indication: BIPOLAR DISORDER
     Route: 048
     Dates: start: 20070324, end: 20070325
  2. WELLBUTRIN [Concomitant]

REACTIONS (1)
  - TACHYCARDIA [None]
